FAERS Safety Report 8576919-7 (Version None)
Quarter: 2012Q3

REPORT INFORMATION
  Report Type: 
  Country: None (occurrence: None)
  Receive Date: 20120807
  Receipt Date: 20120731
  Transmission Date: 20120928
  Serious: Yes (Hospitalization)
  Sender: FDA-Public Use
  Company Number: DE-GILEAD-2012-0058939

PATIENT
  Sex: Male

DRUGS (2)
  1. EMTRICITABINE [Suspect]
     Indication: HIV INFECTION
     Dosage: 1 DF, QD
     Route: 048
     Dates: start: 20120118
  2. PREDNISOLONE [Concomitant]
     Indication: HIV INFECTION
     Dosage: 5 MG, UNK
     Route: 048
     Dates: start: 20120118

REACTIONS (3)
  - FALL [None]
  - SYNCOPE [None]
  - INFECTION [None]
